FAERS Safety Report 14745607 (Version 1)
Quarter: 2018Q2

REPORT INFORMATION
  Report Type: Spontaneous
  Country: FR (occurrence: FR)
  Receive Date: 20180411
  Receipt Date: 20180411
  Transmission Date: 20180711
  Serious: Yes (Other)
  Sender: FDA-Public Use
  Company Number: FR-AUROBINDO-AUR-APL-2018-019386

PATIENT
  Age: 47 Year
  Sex: Female
  Weight: 60 kg

DRUGS (5)
  1. DERINOX /00249602/ [Suspect]
     Active Substance: AMOXICILLIN
     Indication: NASOPHARYNGITIS
     Route: 045
     Dates: start: 20171120, end: 20171208
  2. VOGALENE [Suspect]
     Active Substance: METOPIMAZINE
     Indication: INFLUENZA LIKE ILLNESS
     Route: 065
     Dates: start: 20171120
  3. ESOMEPRAZOLE [Suspect]
     Active Substance: ESOMEPRAZOLE
     Indication: INFLUENZA LIKE ILLNESS
     Dosage: 40 MILLIGRAM
     Route: 065
     Dates: start: 20171120
  4. DOLIPRANE [Suspect]
     Active Substance: ACETAMINOPHEN
     Indication: INFLUENZA LIKE ILLNESS
     Route: 065
     Dates: start: 20171120
  5. DEBRIDAT                           /00465201/ [Suspect]
     Active Substance: TRIMEBUTINE MALEATE
     Indication: INFLUENZA LIKE ILLNESS
     Route: 065
     Dates: start: 20171120

REACTIONS (3)
  - Nervousness [Unknown]
  - Insomnia [Unknown]
  - Hypertensive crisis [Recovered/Resolved]

NARRATIVE: CASE EVENT DATE: 20171222
